FAERS Safety Report 6552898-9 (Version None)
Quarter: 2010Q1

REPORT INFORMATION
  Report Type: 
  Country: None (occurrence: None)
  Receive Date: 20100122
  Receipt Date: 20100118
  Transmission Date: 20100710
  Serious: Yes (Other)
  Sender: FDA-Public Use
  Company Number: 2009SP040881

PATIENT
  Sex: Male

DRUGS (2)
  1. VIRAFERONPEG [Suspect]
     Indication: HEPATITIS C
     Dates: start: 20020101, end: 20020101
  2. REBETOL [Suspect]
     Indication: HEPATITIS C
     Dates: start: 20020101, end: 20020101

REACTIONS (1)
  - ASTHMA [None]
